FAERS Safety Report 13913828 (Version 1)
Quarter: 2017Q3

REPORT INFORMATION
  Report Type: Spontaneous
  Country: US (occurrence: US)
  Receive Date: 20170828
  Receipt Date: 20170828
  Transmission Date: 20171127
  Serious: No
  Sender: FDA-Public Use
  Company Number: US-ROCHE-1140764

PATIENT
  Sex: Male
  Weight: 18.9 kg

DRUGS (3)
  1. NUTROPIN AQ [Suspect]
     Active Substance: SOMATROPIN
     Dosage: DILUTED WITH 2 ML
     Route: 058
  2. NUTROPIN AQ [Suspect]
     Active Substance: SOMATROPIN
     Indication: BODY HEIGHT BELOW NORMAL
     Dosage: 0.186 MG/KG/WEEK OR 0.5 CC PER INJECTION
     Route: 058
  3. NUTROPIN AQ [Suspect]
     Active Substance: SOMATROPIN
     Dosage: 0.3 MG/KG/WEEK
     Route: 058

REACTIONS (6)
  - Allergic sinusitis [Unknown]
  - Oxygen saturation decreased [Unknown]
  - Scoliosis [Unknown]
  - Sluggishness [Unknown]
  - Back pain [Unknown]
  - Headache [Unknown]
